FAERS Safety Report 6069671-0 (Version None)
Quarter: 2009Q1

REPORT INFORMATION
  Report Type: 
  Country: None (occurrence: None)
  Receive Date: 20090209
  Receipt Date: 20090128
  Transmission Date: 20090719
  Serious: Yes (Hospitalization)
  Sender: FDA-Public Use
  Company Number: US-JNJFOC-20090107141

PATIENT
  Sex: Female
  Weight: 80.74 kg

DRUGS (25)
  1. REMICADE [Suspect]
     Route: 042
  2. REMICADE [Suspect]
     Route: 042
  3. REMICADE [Suspect]
     Indication: RHEUMATOID ARTHRITIS
     Route: 042
  4. LISINOPRIL [Concomitant]
     Indication: HYPERTENSION
  5. IMURAN [Concomitant]
  6. IMURAN [Concomitant]
     Indication: BLOOD POTASSIUM
  7. SPIRIVA [Concomitant]
     Indication: CHRONIC OBSTRUCTIVE PULMONARY DISEASE
     Dosage: ^DURATION 3 YEARS^
     Route: 055
  8. ALBUTEROL [Concomitant]
     Indication: ASTHMA
     Dosage: DURATION ^3 YEARS^
     Route: 055
  9. ALLEGRA [Concomitant]
     Indication: SINUS DISORDER
  10. ALLEGRA [Concomitant]
     Indication: MULTIPLE ALLERGIES
     Dosage: DURATION ^7 YEARS^
  11. REQUIP [Concomitant]
     Indication: MOVEMENT DISORDER
  12. REQUIP [Concomitant]
     Indication: PARASOMNIA
  13. SIMVASTATIN [Concomitant]
     Indication: BLOOD CHOLESTEROL INCREASED
     Dosage: DURATION ^6 YEARS^
  14. ELAVIL [Concomitant]
     Indication: SPONDYLITIS
  15. LIMBITROL [Concomitant]
     Indication: SPONDYLITIS
     Dosage: DURATION ^19 YEARS^
  16. METOCLOPRAMIDE [Concomitant]
     Indication: IMPAIRED GASTRIC EMPTYING
     Dosage: DURATION ^9 YEARS^
  17. LONOX [Concomitant]
     Indication: DEPRESSION
     Dosage: DURATION ^5 YEARS^
  18. NITROSTAT [Concomitant]
     Indication: CHEST PAIN
     Dosage: DURATION ^6 YEARS^
  19. TRILEPTAL [Concomitant]
     Indication: MERALGIA PARAESTHETICA
     Dosage: DURATION ^7 YEARS^
  20. PROMETHAZINE [Concomitant]
     Indication: NAUSEA
     Dosage: DURATION ^6 YEARS^
  21. ASPIRIN [Concomitant]
     Indication: CORONARY ARTERY DISEASE
     Dosage: DURATION ^6 YEARS^
  22. FOSAMAX [Concomitant]
     Indication: OSTEOPOROSIS
     Dosage: DURATION ^6 YEARS^
  23. LORCET-HD [Concomitant]
     Indication: PAIN
     Dosage: DURATION ^5 YEARS^
  24. AMBIEN [Concomitant]
     Indication: INSOMNIA
     Dosage: DURATION ^1 YEAR^
  25. OMEPRAZOLE [Concomitant]
     Indication: GASTROOESOPHAGEAL REFLUX DISEASE
     Dosage: DURATION ^4 YEARS^

REACTIONS (4)
  - BLOOD PRESSURE DECREASED [None]
  - CHRONIC OBSTRUCTIVE PULMONARY DISEASE [None]
  - DIZZINESS [None]
  - VISION BLURRED [None]
